FAERS Safety Report 12770751 (Version 1)
Quarter: 2016Q3

REPORT INFORMATION
  Report Type: Report from Study
  Country: US (occurrence: US)
  Receive Date: 20160922
  Receipt Date: 20160922
  Transmission Date: 20161109
  Serious: Yes (Disabling)
  Sender: FDA-Public Use
  Company Number: US-ROCHE-1792952

PATIENT
  Sex: Female

DRUGS (2)
  1. HYDROXYCHLOROQUINE [Concomitant]
     Active Substance: HYDROXYCHLOROQUINE
  2. RITUXAN [Suspect]
     Active Substance: RITUXIMAB
     Indication: RHEUMATOID ARTHRITIS
     Dosage: ON DAY 1 + DAY 15
     Route: 042

REACTIONS (5)
  - Oropharyngeal pain [Recovered/Resolved]
  - Ill-defined disorder [Unknown]
  - Chills [Recovered/Resolved]
  - Irritable bowel syndrome [Unknown]
  - Infection [Unknown]
